FAERS Safety Report 24104167 (Version 1)
Quarter: 2024Q3

REPORT INFORMATION
  Report Type: Spontaneous
  Country: US (occurrence: US)
  Receive Date: 20240717
  Receipt Date: 20240717
  Transmission Date: 20241016
  Serious: Yes (Hospitalization)
  Sender: MYLAN
  Company Number: US-MYLANLABS-2024M1066223

PATIENT
  Age: 2 Year
  Sex: Male

DRUGS (4)
  1. DOXORUBICIN [Suspect]
     Active Substance: DOXORUBICIN
     Indication: Hepatoblastoma
     Dosage: UNK
     Route: 065
  2. CISPLATIN [Suspect]
     Active Substance: CISPLATIN
     Indication: Hepatoblastoma
     Dosage: UNK
     Route: 065
  3. VINCRISTINE [Suspect]
     Active Substance: VINCRISTINE
     Indication: Hepatoblastoma
     Dosage: UNK
     Route: 065
  4. FLUOROURACIL [Suspect]
     Active Substance: FLUOROURACIL
     Indication: Hepatoblastoma
     Dosage: UNK
     Route: 065

REACTIONS (8)
  - Cardiac arrest [Unknown]
  - Bradycardia [Unknown]
  - Myelosuppression [Unknown]
  - Inferior vena caval occlusion [Unknown]
  - Respiratory disorder [Unknown]
  - Infection [Unknown]
  - Nephropathy toxic [Unknown]
  - Electrolyte imbalance [Unknown]
